FAERS Safety Report 15950759 (Version 1)
Quarter: 2019Q1

REPORT INFORMATION
  Report Type: Spontaneous
  Country: FR (occurrence: FR)
  Receive Date: 20190212
  Receipt Date: 20190212
  Transmission Date: 20190417
  Serious: Yes (Hospitalization)
  Sender: FDA-Public Use
  Company Number: FR-SA-2019SA034401

PATIENT
  Age: 57 Year
  Sex: Male
  Weight: 125 kg

DRUGS (4)
  1. LOVENOX [Suspect]
     Active Substance: ENOXAPARIN SODIUM
     Indication: THROMBOSIS PROPHYLAXIS
     Dosage: 20000 IU, QD
     Route: 058
     Dates: start: 20190111
  2. FLUINDIONE [Interacting]
     Active Substance: FLUINDIONE
     Indication: THROMBOSIS PROPHYLAXIS
     Dosage: 2 DF, QD
     Route: 048
     Dates: start: 20190111
  3. RIFADINE [Interacting]
     Active Substance: RIFAMPIN
     Indication: BACTERIAL INFECTION
     Dosage: 1800 MG,QD
     Route: 048
     Dates: start: 20190111, end: 20190125
  4. LEVOFLOXACINE ACCORD [Suspect]
     Active Substance: LEVOFLOXACIN
     Indication: BACTERIAL INFECTION
     Dosage: 1000 MG, QD
     Route: 048
     Dates: start: 20190111

REACTIONS (3)
  - Bloody discharge [Recovered/Resolved]
  - Fatigue [Recovered/Resolved]
  - Drug interaction [Unknown]

NARRATIVE: CASE EVENT DATE: 20190123
